FAERS Safety Report 16743127 (Version 1)
Quarter: 2019Q3

REPORT INFORMATION
  Report Type: Spontaneous
  Country: FI (occurrence: FI)
  Receive Date: 20190827
  Receipt Date: 20190827
  Transmission Date: 20191005
  Serious: Yes (Disabling)
  Sender: FDA-Public Use
  Company Number: FI-B.I. PHARMACEUTICALS,INC./RIDGEFIELD-2019-12-002677

PATIENT
  Age: 66 Year
  Sex: Male

DRUGS (15)
  1. HYDREX [Concomitant]
     Indication: HYPERTENSION
     Dosage: 12.5,MG, DAILY
     Route: 048
     Dates: start: 20130820
  2. EZETROL [Concomitant]
     Active Substance: EZETIMIBE
     Indication: DYSLIPIDAEMIA
     Dosage: 10,MG, DAILY
     Route: 048
     Dates: start: 20160510
  3. ORMOX [Concomitant]
     Indication: CORONARY ARTERY DISEASE
     Dosage: 20,MG, DAILY
     Route: 048
     Dates: start: 20120627
  4. TAMSULOSIINIHYDROKLORIDI ORION [Concomitant]
     Indication: BENIGN PROSTATIC HYPERPLASIA
     Dosage: 0.4,MG, DAILY
     Route: 048
     Dates: start: 20120627, end: 20140504
  5. JARDIANCE [Concomitant]
     Active Substance: EMPAGLIFLOZIN
     Indication: DIABETES MELLITUS
     Dosage: 25,MG, DAILY
     Route: 048
     Dates: start: 20110127
  6. ZANIDIP [Concomitant]
     Active Substance: LERCANIDIPINE HYDROCHLORIDE
     Indication: HYPERTENSION
     Dosage: 20,MG,DAILY
     Route: 048
     Dates: start: 20170218
  7. BISOPROLOL ACCORD [Concomitant]
     Active Substance: BISOPROLOL
     Indication: HYPERTENSION
     Dosage: 5,MG, DAILY
     Route: 048
     Dates: start: 20130820
  8. LANTUS [Concomitant]
     Active Substance: INSULIN GLARGINE
     Indication: DIABETES MELLITUS
     Dosage: 60,IU, DAILY
     Route: 058
     Dates: start: 20130820
  9. SPIRONOLACTONE ORION [Concomitant]
     Active Substance: SPIRONOLACTONE
     Indication: HYPERTENSION
     Dosage: 25,MG,DAILY
     Route: 048
     Dates: start: 20170219
  10. MICARDIS [Suspect]
     Active Substance: TELMISARTAN
     Indication: HYPERTENSION
     Dosage: 40,MG, DAILY
     Route: 048
     Dates: start: 20120627, end: 20190801
  11. MAREVAN [Concomitant]
     Active Substance: WARFARIN SODIUM
     Indication: ATRIAL FIBRILLATION
     Route: 048
     Dates: start: 20130820
  12. DUODART [Concomitant]
     Active Substance: DUTASTERIDE\TAMSULOSIN
     Indication: BENIGN PROSTATIC HYPERPLASIA
     Dosage: 1,DF,DAILY
     Route: 048
     Dates: start: 20140504
  13. EMGESAN [Concomitant]
     Active Substance: MAGNESIUM HYDROXIDE
     Indication: MUSCLE SPASMS
     Dosage: 250,MG,DAILY
     Route: 048
     Dates: start: 20170321
  14. SOMAC [Concomitant]
     Active Substance: PANTOPRAZOLE SODIUM
     Indication: GASTROOESOPHAGEAL REFLUX DISEASE
     Dosage: AS NECESSARY
     Route: 048
     Dates: start: 20190504
  15. DIFORMIN [Concomitant]
     Active Substance: METFORMIN HYDROCHLORIDE
     Indication: DIABETES MELLITUS
     Dosage: 1,G, DAILY
     Route: 048
     Dates: start: 20120627

REACTIONS (1)
  - Interstitial lung disease [Recovered/Resolved with Sequelae]

NARRATIVE: CASE EVENT DATE: 20190806
